FAERS Safety Report 10099127 (Version 1)
Quarter: 2014Q2

REPORT INFORMATION
  Report Type: Spontaneous
  Country: US (occurrence: None)
  Receive Date: 20140422
  Receipt Date: 20140422
  Transmission Date: 20141212
  Serious: Yes (Other)
  Sender: FDA-Public Use
  Company Number: None

PATIENT
  Age: 10 Year
  Sex: Male
  Weight: 48.54 kg

DRUGS (1)
  1. CLINDAMYCIN [Suspect]
     Indication: SINUSITIS
     Dosage: 3 PILLS
     Route: 048
     Dates: start: 20140328, end: 20140327

REACTIONS (2)
  - Tinnitus [None]
  - Deafness [None]
